FAERS Safety Report 4373305-0 (Version None)
Quarter: 2004Q2

REPORT INFORMATION
  Report Type: 
  Country: None (occurrence: None)
  Receive Date: 20040603
  Receipt Date: 20040521
  Transmission Date: 20050107
  Serious: Yes (Hospitalization, Disabling, Other)
  Sender: FDA-Public Use
  Company Number: 2004034560

PATIENT
  Age: 33 Year
  Sex: Female
  Weight: 68.0396 kg

DRUGS (3)
  1. RELPAX [Suspect]
     Indication: MIGRAINE WITHOUT AURA
     Dosage: 40 MG (40 MG, ONCE), ORAL
     Route: 048
     Dates: start: 20040505, end: 20040505
  2. VITAMINS (VITAMINS) [Concomitant]
  3. IBUPROFEN [Concomitant]

REACTIONS (17)
  - APHONIA [None]
  - ASPARTATE AMINOTRANSFERASE DECREASED [None]
  - ASTHENIA [None]
  - BLINDNESS UNILATERAL [None]
  - BLOOD GLUCOSE INCREASED [None]
  - BLOOD PHOSPHORUS DECREASED [None]
  - BLOOD POTASSIUM DECREASED [None]
  - CEREBROVASCULAR ACCIDENT [None]
  - FALL [None]
  - HEMIPLEGIA TRANSIENT [None]
  - MIGRAINE WITH AURA [None]
  - PARAESTHESIA [None]
  - POTASSIUM CHLORIDE SENSITIVITY TEST ABNORMAL [None]
  - PROTHROMBIN TIME PROLONGED [None]
  - SYNCOPE [None]
  - VASOSPASM [None]
  - VISION BLURRED [None]
